FAERS Safety Report 5729182-6 (Version None)
Quarter: 2008Q2

REPORT INFORMATION
  Report Type: 
  Country: None (occurrence: None)
  Receive Date: 20080506
  Receipt Date: 20080428
  Transmission Date: 20081010
  Serious: Yes (Other)
  Sender: FDA-Public Use
  Company Number: FR-JNJFOC-20071103861

PATIENT
  Sex: Female
  Weight: 57 kg

DRUGS (8)
  1. REMINYL LP [Suspect]
     Route: 048
  2. REMINYL LP [Suspect]
     Indication: COGNITIVE DISORDER
     Route: 048
  3. REMINYL LP [Suspect]
     Indication: HALLUCINATION
     Route: 048
  4. REMINYL LP [Suspect]
     Indication: EXTRAPYRAMIDAL DISORDER
     Route: 048
  5. REMINYL LP [Suspect]
     Indication: DEMENTIA
     Route: 048
  6. NORSET [Concomitant]
     Indication: DRUG USE FOR UNKNOWN INDICATION
  7. STALEVO 100 [Concomitant]
     Indication: EXTRAPYRAMIDAL DISORDER
     Dosage: 150-150-100
     Route: 048
  8. SINEMET [Concomitant]
     Indication: EXTRAPYRAMIDAL DISORDER
     Dosage: 100X2-150-150-100
     Route: 048

REACTIONS (5)
  - BALANCE DISORDER [None]
  - PARKINSONIAN GAIT [None]
  - RENAL FAILURE [None]
  - TREMOR [None]
  - VERTIGO [None]
